FAERS Safety Report 7249595-3 (Version None)
Quarter: 2011Q1

REPORT INFORMATION
  Report Type: 
  Country: None (occurrence: None)
  Receive Date: 20110128
  Receipt Date: 20101215
  Transmission Date: 20110831
  Serious: Yes (Hospitalization, Other)
  Sender: FDA-Public Use
  Company Number: US-BAYER-200912712NA

PATIENT
  Sex: Female

DRUGS (14)
  1. BETASERON [Suspect]
     Indication: RELAPSING-REMITTING MULTIPLE SCLEROSIS
     Dosage: UNK
     Route: 058
     Dates: start: 20030331, end: 20050721
  2. BETASERON [Suspect]
     Dosage: BETAJECT 2 MIU, QOD
     Route: 058
     Dates: start: 20100917
  3. BETASERON [Suspect]
     Dosage: UNK
     Route: 058
     Dates: start: 20070127, end: 20080201
  4. BETASERON [Suspect]
     Dosage: BETAJECT 6 MIU, QOD
     Route: 058
  5. ACETAMINOPHEN [Concomitant]
  6. MORPHINE [Concomitant]
     Route: 048
  7. BETASERON [Suspect]
     Dosage: 8 MIU, QOD
     Route: 058
     Dates: start: 20080404, end: 20090530
  8. BETASERON [Suspect]
     Dosage: BETAJECT 4 MIU, QOD
     Route: 058
  9. ANTIDEPRESSANTS [Concomitant]
  10. BETASERON [Suspect]
     Dosage: UNK
     Route: 058
     Dates: start: 20060220, end: 20061001
  11. ANTIEPILEPTICS [Concomitant]
  12. BETASERON [Suspect]
     Dosage: BETAJECT 8 MIU, QOD
     Route: 058
  13. UNKNOWN DRUG [Concomitant]
     Indication: BLOOD PRESSURE ABNORMAL
  14. UNKNOWN [Concomitant]

REACTIONS (13)
  - TREMOR [None]
  - FATIGUE [None]
  - CONVULSION [None]
  - HALLUCINATION, AUDITORY [None]
  - DIZZINESS [None]
  - HEAD INJURY [None]
  - URINARY TRACT INFECTION [None]
  - LOSS OF CONSCIOUSNESS [None]
  - HYPERTENSION [None]
  - ASTHENIA [None]
  - FALL [None]
  - FOOT FRACTURE [None]
  - HYPOTENSION [None]
